FAERS Safety Report 7562772-7 (Version None)
Quarter: 2011Q2

REPORT INFORMATION
  Report Type: 
  Country: None (occurrence: None)
  Receive Date: 20110615
  Receipt Date: 20110610
  Transmission Date: 20111010
  Serious: Yes (Disabling)
  Sender: FDA-Public Use
  Company Number: WAES 1106ESP00015

PATIENT
  Age: 30 Year
  Sex: Male

DRUGS (2)
  1. MAXALT [Suspect]
     Indication: MIGRAINE
     Dosage: PO
     Route: 048
  2. PROPRANOLOL [Suspect]
     Indication: MIGRAINE PROPHYLAXIS
     Dosage: 20 MG/BID PO
     Route: 048

REACTIONS (5)
  - EXERCISE TOLERANCE DECREASED [None]
  - ORTHOSTATIC HYPOTENSION [None]
  - MIGRAINE [None]
  - DRY MOUTH [None]
  - PERSONALITY CHANGE [None]
